FAERS Safety Report 22362341 (Version 1)
Quarter: 2023Q2

REPORT INFORMATION
  Report Type: Spontaneous
  Country: CN (occurrence: CN)
  Receive Date: 20230524
  Receipt Date: 20230524
  Transmission Date: 20230721
  Serious: Yes (Other)
  Sender: FDA-Public Use
  Company Number: CN-PFIZER INC-PV202300090385

PATIENT
  Age: 50 Year
  Sex: Female
  Weight: 60 kg

DRUGS (6)
  1. CYTARABINE [Suspect]
     Active Substance: CYTARABINE
     Indication: Burkitt^s lymphoma
     Dosage: 0.05 G, 1X/DAY
     Route: 037
     Dates: start: 20230418, end: 20230418
  2. DEXAMETHASONE SODIUM PHOSPHATE [Suspect]
     Active Substance: DEXAMETHASONE SODIUM PHOSPHATE
     Indication: Burkitt^s lymphoma
     Dosage: 5 MG, 1X/DAY
     Route: 037
     Dates: start: 20230418, end: 20230418
  3. SODIUM CHLORIDE [Suspect]
     Active Substance: SODIUM CHLORIDE
     Indication: Burkitt^s lymphoma
     Dosage: 1 ML, 1X/DAY
     Route: 037
     Dates: start: 20230418, end: 20230418
  4. SODIUM CHLORIDE [Suspect]
     Active Substance: SODIUM CHLORIDE
     Dosage: 2 ML, 1X/DAY
     Route: 037
     Dates: start: 20230418, end: 20230418
  5. METHOTREXATE [Suspect]
     Active Substance: METHOTREXATE
     Indication: Burkitt^s lymphoma
     Dosage: 10 MG, 1X/DAY
     Route: 037
     Dates: start: 20230418, end: 20230418
  6. WATER [Suspect]
     Active Substance: WATER
     Indication: Vehicle solution use
     Dosage: 1 ML, 1X/DAY
     Route: 037
     Dates: start: 20230418, end: 20230418

REACTIONS (4)
  - Perineal pain [Recovered/Resolved]
  - Pain in extremity [Recovered/Resolved]
  - Proctalgia [Recovered/Resolved]
  - Hypoaesthesia [Recovered/Resolved]

NARRATIVE: CASE EVENT DATE: 20230418
